FAERS Safety Report 8827212 (Version 1)
Quarter: 2012Q4

REPORT INFORMATION
  Report Type: 
  Country: US (occurrence: US)
  Receive Date: 20121006
  Receipt Date: 20121006
  Transmission Date: 20130627
  Serious: Yes (Hospitalization, Other)
  Sender: FDA-Public Use
  Company Number: US-PAR PHARMACEUTICAL, INC-2012SCPR004634

PATIENT

DRUGS (4)
  1. FLUOXETINE [Suspect]
     Indication: SCHIZOAFFECTIVE DISORDER
     Dosage: 10 mg, qd
     Route: 048
  2. FLUOXETINE [Suspect]
     Dosage: 15 mg, qd
     Route: 048
  3. QUETIAPINE [Suspect]
     Indication: SCHIZOAFFECTIVE DISORDER
     Dosage: 100 mg, qd
     Route: 048
  4. ZIPRASIDONE [Suspect]
     Indication: SCHIZOAFFECTIVE DISORDER
     Dosage: 60 mg, bid
     Route: 048

REACTIONS (6)
  - Galactorrhoea [Recovered/Resolved]
  - Breast pain [Unknown]
  - Breast enlargement [Unknown]
  - Bacterial test positive [Unknown]
  - Hostility [Unknown]
  - Mood altered [Unknown]
